FAERS Safety Report 7086235-0 (Version None)
Quarter: 2010Q4

REPORT INFORMATION
  Report Type: 
  Country: None (occurrence: None)
  Receive Date: 20101105
  Receipt Date: 20101028
  Transmission Date: 20110411
  Serious: Yes (Hospitalization)
  Sender: FDA-Public Use
  Company Number: US-AMGEN-USASP2010002184

PATIENT

DRUGS (1)
  1. ENBREL [Suspect]
     Indication: RHEUMATOID ARTHRITIS
     Dosage: 50 MG, QWK
     Dates: start: 20090901, end: 20101019

REACTIONS (6)
  - BLOOD POTASSIUM DECREASED [None]
  - HERPES ZOSTER [None]
  - INFECTION [None]
  - MYALGIA [None]
  - STAPHYLOCOCCAL INFECTION [None]
  - VOMITING [None]
